FAERS Safety Report 6348316-6 (Version None)
Quarter: 2009Q3

REPORT INFORMATION
  Report Type: 
  Country: None (occurrence: None)
  Receive Date: 20090910
  Receipt Date: 20090830
  Transmission Date: 20100115
  Serious: Yes (Other)
  Sender: FDA-Public Use
  Company Number: AU-JNJCH-2009023742

PATIENT
  Age: 5 Year
  Sex: Female

DRUGS (1)
  1. BENADRYL PE CHESTY COUGH + NASAL CONGESTION [Suspect]
     Indication: DRUG USE FOR UNKNOWN INDICATION
     Dosage: TEXT:UNSPECIFIED
     Route: 048
     Dates: start: 20090801, end: 20090801

REACTIONS (1)
  - HALLUCINATION [None]
